FAERS Safety Report 4389621-2 (Version None)
Quarter: 2004Q3

REPORT INFORMATION
  Report Type: 
  Country: None (occurrence: None)
  Receive Date: 20040702
  Receipt Date: 20040224
  Transmission Date: 20050211
  Serious: Yes (Hospitalization)
  Sender: FDA-Public Use
  Company Number: FR-MERCK-0402FRA00073

PATIENT
  Age: 68 Year
  Sex: Male

DRUGS (5)
  1. AMIKACIN SULFATE [Suspect]
     Route: 042
     Dates: start: 20031204, end: 20031206
  2. PRIMAXIN [Suspect]
     Route: 041
     Dates: start: 20031204, end: 20031211
  3. PREDNISOLONE SODIUM METASULFOBENZOATE [Suspect]
     Route: 048
     Dates: start: 20031210, end: 20031217
  4. TEICOPLANIN [Suspect]
     Route: 042
     Dates: start: 20031211, end: 20031223
  5. VANCOMYCIN [Suspect]
     Route: 041
     Dates: start: 20031204, end: 20031211

REACTIONS (1)
  - TOXIC SKIN ERUPTION [None]
